FAERS Safety Report 22227254 (Version 1)
Quarter: 2023Q2

REPORT INFORMATION
  Report Type: Spontaneous
  Country: RU (occurrence: RU)
  Receive Date: 20230419
  Receipt Date: 20230419
  Transmission Date: 20230722
  Serious: Yes (Life-Threatening, Hospitalization, Other)
  Sender: FDA-Public Use
  Company Number: RU-ABBVIE-4733914

PATIENT
  Age: 85 Year
  Sex: Male
  Weight: 73 kg

DRUGS (2)
  1. LOPINAVIR\RITONAVIR [Suspect]
     Active Substance: LOPINAVIR\RITONAVIR
     Indication: COVID-19
     Dosage: 400/100, 2 TIMES PER DAY
     Route: 048
     Dates: start: 20200713, end: 20200718
  2. TOFACITINIB [Suspect]
     Active Substance: TOFACITINIB
     Indication: COVID-19
     Route: 048
     Dates: start: 20200711, end: 20200718

REACTIONS (5)
  - COVID-19 pneumonia [Unknown]
  - Drug ineffective for unapproved indication [Unknown]
  - Ischaemic stroke [Unknown]
  - Off label use [Unknown]
  - Mechanical ventilation [Unknown]

NARRATIVE: CASE EVENT DATE: 20200716
